FAERS Safety Report 5689551-X (Version None)
Quarter: 2008Q1

REPORT INFORMATION
  Report Type: 
  Country: None (occurrence: None)
  Receive Date: 20080331
  Receipt Date: 20080319
  Transmission Date: 20080703
  Serious: Yes (Hospitalization)
  Sender: FDA-Public Use
  Company Number: GB-AMGEN-UK271213

PATIENT
  Age: 30 Year
  Sex: Female

DRUGS (3)
  1. KINERET [Suspect]
     Indication: JUVENILE ARTHRITIS
     Route: 058
     Dates: start: 20071219, end: 20080125
  2. CO-CODAMOL [Concomitant]
  3. PREDNISOLONE [Concomitant]

REACTIONS (6)
  - ASTHMA [None]
  - BRONCHOSPASM [None]
  - COUGH [None]
  - DYSPNOEA [None]
  - PRODUCTIVE COUGH [None]
  - WHEEZING [None]
